FAERS Safety Report 17046324 (Version 1)
Quarter: 2019Q4

REPORT INFORMATION
  Report Type: Report from Study
  Country: IT (occurrence: IT)
  Receive Date: 20191119
  Receipt Date: 20191119
  Transmission Date: 20200122
  Serious: Yes (Other)
  Sender: FDA-Public Use
  Company Number: IT-ROCHE-2474789

PATIENT

DRUGS (1)
  1. ALTEPLASE. [Suspect]
     Active Substance: ALTEPLASE
     Indication: CEREBROVASCULAR ACCIDENT
     Dosage: OF TOTAL DOSE ADMINISTERED AS AN IV BOLUS OVER 1-2 MIN (1 IN 1 ONCE) AND REMAINING 90% OF THE DOSE G
     Route: 042

REACTIONS (1)
  - Vocal cord paralysis [Unknown]
